FAERS Safety Report 12824775 (Version 1)
Quarter: 2016Q4

REPORT INFORMATION
  Report Type: Spontaneous
  Country: GB (occurrence: GB)
  Receive Date: 20161007
  Receipt Date: 20161007
  Transmission Date: 20170207
  Serious: Yes (Hospitalization)
  Sender: FDA-Public Use
  Company Number: GB-PFIZER INC-3104311

PATIENT
  Age: 52 Year
  Sex: Female

DRUGS (77)
  1. HERCEPTIN [Suspect]
     Active Substance: TRASTUZUMAB
     Dosage: 588 MG, CUMULATIVE DOSE: 420 MG, FREQ: 1 WEEK; INTERVAL: 3
     Route: 042
     Dates: start: 20151120
  2. PERTUZUMAB [Suspect]
     Active Substance: PERTUZUMAB
     Dosage: 420 MG, MAINTENANCE DOSE; LAST DOSE PRIOR TO SEPSIS FROM HICKMA:16OCT2015, FREQ: 1 WEEK; INTERVAL: 3
     Route: 042
     Dates: end: 20151106
  3. CORSODYL [Concomitant]
     Active Substance: CHLORHEXIDINE GLUCONATE
     Dosage: 10 ML, UNK
     Dates: start: 20130711
  4. LYRICA [Concomitant]
     Active Substance: PREGABALIN
     Dosage: UNK UNK, 2X/DAY
     Dates: start: 201304
  5. OXYCONTIN [Concomitant]
     Active Substance: OXYCODONE HYDROCHLORIDE
     Dosage: 60 MG, UNK
     Dates: start: 20140912
  6. DEXAMETHASONE. [Concomitant]
     Active Substance: DEXAMETHASONE
     Dosage: 1 MG, UNK
     Dates: start: 20130511, end: 20130517
  7. DEXAMETHASONE. [Concomitant]
     Active Substance: DEXAMETHASONE
     Dosage: 8 MG, UNK
     Dates: start: 20130516
  8. DEXAMETHASONE. [Concomitant]
     Active Substance: DEXAMETHASONE
     Dosage: 1 MG, UNK
     Dates: start: 20130521, end: 20130524
  9. FLUCLOXACILLIN [Concomitant]
     Active Substance: FLUCLOXACILLIN
     Dosage: 2 G, UNK
     Dates: start: 20130617
  10. FUROSEMIDE. [Concomitant]
     Active Substance: FUROSEMIDE
     Dosage: 20 MG, UNK
     Dates: start: 20130524, end: 20130528
  11. FUROSEMIDE. [Concomitant]
     Active Substance: FUROSEMIDE
     Dosage: 40 MG, UNK
     Dates: start: 20130801, end: 20130808
  12. FUROSEMIDE. [Concomitant]
     Active Substance: FUROSEMIDE
     Dosage: 80 MG, UNK
     Dates: start: 20130808, end: 20130815
  13. GENTAMICIN. [Concomitant]
     Active Substance: GENTAMICIN
     Dosage: UNK
     Dates: start: 20130311, end: 20130312
  14. LEVOTHYROXINE. [Concomitant]
     Active Substance: LEVOTHYROXINE
     Dosage: 100 MG, FREQ: 1 DAY; INTERVAL: 1
     Dates: start: 200110, end: 20130621
  15. CIPROFLOXACIN. [Concomitant]
     Active Substance: CIPROFLOXACIN
     Dosage: 1 G, UNK
     Dates: start: 20160317, end: 20160323
  16. CLARITHROMYCIN. [Concomitant]
     Active Substance: CLARITHROMYCIN
     Dosage: 1 G, UNK
     Dates: start: 20160218, end: 20160224
  17. CO-AMOXICLAV /00756801/ [Concomitant]
     Active Substance: AMOXICILLIN\CLAVULANIC ACID
     Dosage: 625 MG, UNK
     Route: 048
     Dates: start: 20150323, end: 20160331
  18. ESTRADERM [Concomitant]
     Active Substance: ESTRADIOL
     Dosage: 75 MG 2X/WEEK
     Dates: start: 20121114
  19. LOPERAMIDE [Concomitant]
     Active Substance: LOPERAMIDE
     Dosage: 10 MG, UNK
     Dates: start: 20130523, end: 20130526
  20. AMOXICILLIN. [Concomitant]
     Active Substance: AMOXICILLIN
     Dosage: 1500 MG, UNK
     Dates: start: 20160212, end: 20160216
  21. DEXAMETHASONE. [Concomitant]
     Active Substance: DEXAMETHASONE
     Dosage: 4 MG, 1X/DAY
     Dates: start: 20130401, end: 20130505
  22. FUROSEMIDE. [Concomitant]
     Active Substance: FUROSEMIDE
     Dosage: 20 MG, 1X/DAY
     Dates: start: 20130516, end: 20130519
  23. FUROSEMIDE. [Concomitant]
     Active Substance: FUROSEMIDE
     Dosage: 40 MG, UNK
     Dates: start: 20130815, end: 20130904
  24. METOCLOPRAMIDE. [Concomitant]
     Active Substance: METOCLOPRAMIDE
     Dosage: 30 MG, UNK
     Route: 065
     Dates: start: 20130516
  25. OMEPRAZOLE. [Concomitant]
     Active Substance: OMEPRAZOLE
     Dosage: 8 UNK, UNK
     Dates: start: 20130712
  26. PREGABALIN. [Concomitant]
     Active Substance: PREGABALIN
     Dosage: 300 MG, UNK
     Dates: start: 20130820, end: 20130829
  27. OXYCONTIN [Concomitant]
     Active Substance: OXYCODONE HYDROCHLORIDE
     Dosage: 10 MG, UNK
  28. SEVREDOL [Concomitant]
     Active Substance: MORPHINE
     Dosage: 10 MG, AS NEEDED
     Dates: start: 20130711, end: 20131008
  29. AMOXICILLIN. [Concomitant]
     Active Substance: AMOXICILLIN
     Dosage: 1500 MG, UNK
     Dates: start: 20131212, end: 20131218
  30. CHLORPHENAMINE [Concomitant]
     Active Substance: CHLORPHENIRAMINE MALEATE
     Dosage: 10 MG, UNK
     Dates: start: 20130516
  31. DEXAMETHASONE. [Concomitant]
     Active Substance: DEXAMETHASONE
     Dosage: 2 MG, UNK
     Dates: start: 20130520, end: 20130521
  32. FUROSEMIDE. [Concomitant]
     Active Substance: FUROSEMIDE
     Dosage: 20 MG, UNK
     Dates: start: 20130613, end: 20130618
  33. KETAMINE [Concomitant]
     Active Substance: KETAMINE
     Dosage: VARIABLE PRN, FREQ: AS NEEDED
     Dates: start: 20130912, end: 20130918
  34. METOCLOPRAMIDE. [Concomitant]
     Active Substance: METOCLOPRAMIDE
     Dosage: 60 MG, UNK
     Route: 065
     Dates: start: 20130725, end: 20130801
  35. PARACETAMOL [Concomitant]
     Active Substance: ACETAMINOPHEN
     Dosage: 4 TIMES DAILY
     Route: 065
     Dates: start: 201303
  36. MORPHINE SULPHATE [Concomitant]
     Active Substance: MORPHINE SULFATE
     Dosage: 80 MG, UNK
     Dates: start: 20130808
  37. CIPROFLOXACIN. [Concomitant]
     Active Substance: CIPROFLOXACIN
     Dosage: 1000 MG, UNK
     Dates: start: 20150511, end: 20150521
  38. HERCEPTIN [Suspect]
     Active Substance: TRASTUZUMAB
     Dosage: 588 MG, MAINTENANCE DOSE; LAST DOSE PRIOR TO SAE: 16 OCT 2015, FREQ: 3 WEEK; INTERVAL: 1
     Route: 042
     Dates: end: 20151106
  39. SEVREDOL [Concomitant]
     Active Substance: MORPHINE
     Dosage: 15 MG, 3X/DAY
     Dates: start: 201304, end: 20130710
  40. TAZOCIN [Concomitant]
     Active Substance: PIPERACILLIN SODIUM\TAZOBACTAM SODIUM
     Dosage: 13.5 MG, UNK
     Dates: start: 20151105
  41. AMOXICILLIN. [Concomitant]
     Active Substance: AMOXICILLIN
     Dosage: 1500 MG, UNK
     Dates: start: 20140127, end: 20140203
  42. BISACODYL. [Concomitant]
     Active Substance: BISACODYL
     Dosage: 10 MG, UNK
     Dates: start: 20131128
  43. DEXAMETHASONE. [Concomitant]
     Active Substance: DEXAMETHASONE
     Dosage: 2 MG, UNK
     Dates: start: 20130505, end: 20130510
  44. FLUCLOXACILLIN [Concomitant]
     Active Substance: FLUCLOXACILLIN
     Dosage: 2 G, UNK
     Dates: start: 20160428
  45. HYPROMELLOSE [Concomitant]
     Active Substance: HYPROMELLOSES
     Dosage: 4 GTT DROP(S), UNK
     Route: 065
     Dates: start: 20130801
  46. PERTUZUMAB [Suspect]
     Active Substance: PERTUZUMAB
     Indication: HER-2 POSITIVE BREAST CANCER
     Dosage: 840 MG, LOADING DOSE: DAY 1 CYCLE 1
     Route: 042
     Dates: start: 20130516
  47. CO-AMOXICLAV /00756801/ [Concomitant]
     Active Substance: AMOXICILLIN\CLAVULANIC ACID
     Dosage: UNK
     Route: 042
     Dates: start: 20150319, end: 20150325
  48. LAXIDO /06401201/ [Concomitant]
     Active Substance: POLYETHYLENE GLYCOL 3350\POTASSIUM CHLORIDE\SODIUM BICARBONATE\SODIUM CHLORIDE
     Dosage: 2 SACHETS
     Dates: start: 201306
  49. OXYCONTIN [Concomitant]
     Active Substance: OXYCODONE HYDROCHLORIDE
     Dosage: 40 MG, UNK
     Dates: start: 20131120
  50. TAZOCIN [Concomitant]
     Active Substance: PIPERACILLIN SODIUM\TAZOBACTAM SODIUM
     Dosage: 4.5 MG, UNK
     Dates: start: 20130516, end: 20130520
  51. DEXAMETHASONE. [Concomitant]
     Active Substance: DEXAMETHASONE
     Dosage: 0.5 MG, UNK
     Dates: start: 20130525, end: 20130612
  52. FERROUS FUMARATE [Concomitant]
     Active Substance: FERROUS FUMARATE
     Dosage: 630 MG, UNK
     Dates: start: 20130711, end: 20131010
  53. FUROSEMIDE. [Concomitant]
     Active Substance: FUROSEMIDE
     Dosage: 40 MG, UNK
     Dates: start: 20130619, end: 20130710
  54. FUROSEMIDE. [Concomitant]
     Active Substance: FUROSEMIDE
     Dosage: 160 MG, UNK
     Dates: start: 20130711, end: 20130801
  55. GELCLAIR /01702001/ [Concomitant]
     Dosage: UNK
     Dates: start: 20130619
  56. LYRICA [Concomitant]
     Active Substance: PREGABALIN
     Dosage: 450 MG, UNK
     Route: 065
     Dates: start: 20130829
  57. SEVREDOL [Concomitant]
     Active Substance: MORPHINE
     Dosage: 15 MG, AS NEEDED
     Dates: start: 20131009
  58. DOXYCYCLINE. [Concomitant]
     Active Substance: DOXYCYCLINE
     Dosage: 10 MG, UNK
     Dates: start: 20140725
  59. METOCLOPRAMIDE. [Concomitant]
     Active Substance: METOCLOPRAMIDE
     Dosage: 10 MG, UNK
     Route: 065
     Dates: start: 20130801
  60. OMEPRAZOLE. [Concomitant]
     Active Substance: OMEPRAZOLE
     Dosage: 20 MG, UNK
     Route: 065
     Dates: start: 20140304, end: 20140911
  61. RANITIDINE. [Concomitant]
     Active Substance: RANITIDINE
     Dosage: 50 MG, UNK
     Route: 065
     Dates: start: 20130523, end: 20131122
  62. CIPROFLOXACIN. [Concomitant]
     Active Substance: CIPROFLOXACIN
     Dosage: UNK
     Dates: start: 20160831, end: 20160902
  63. HERCEPTIN [Suspect]
     Active Substance: TRASTUZUMAB
     Indication: HER-2 POSITIVE BREAST CANCER
     Dosage: 8 MG/KG, LOADING DOSE: DAY 1 CYCLE 1
     Route: 042
     Dates: start: 20130516
  64. DOXYCYCLINE. [Concomitant]
     Active Substance: DOXYCYCLINE
     Dosage: 200 MG, UNK
     Dates: start: 20140724, end: 20140724
  65. FUROSEMIDE. [Concomitant]
     Active Substance: FUROSEMIDE
     Dosage: 40 MG, UNK
     Dates: start: 20131024
  66. LEVOTHYROXINE. [Concomitant]
     Active Substance: LEVOTHYROXINE
     Dosage: 125 UG, UNK
     Dates: start: 20130621
  67. ONDANSETRON [Concomitant]
     Active Substance: ONDANSETRON
     Dosage: 8 MG, UNK
     Route: 065
     Dates: start: 20130707
  68. PREGABALIN. [Concomitant]
     Active Substance: PREGABALIN
     Dosage: 450 MG, UNK
     Dates: start: 20130829
  69. HYDROCORTISONE. [Concomitant]
     Active Substance: HYDROCORTISONE
     Dosage: UNK
     Dates: start: 20150516
  70. IMODIUM [Concomitant]
     Active Substance: LOPERAMIDE HYDROCHLORIDE
     Dosage: 2 MG, AS NEEDED
     Dates: start: 20130729
  71. PACLITAXEL. [Suspect]
     Active Substance: PACLITAXEL
     Indication: HER-2 POSITIVE BREAST CANCER
     Dosage: 156 MG, DAY 1 CYCLE 1 LAST DOSE PRIOR TO SAE: 24 OCT 2013, 3 TIMES WEEKLY
     Route: 042
     Dates: start: 20130523
  72. PERTUZUMAB [Suspect]
     Active Substance: PERTUZUMAB
     Dosage: 420 MG, CUMULATIVE DOSE: 300 MG, FREQ: 1 WEEK; INTERVAL: 3 LAST DOSE PRIOR TO SEPSIS 12AUG2016
     Route: 042
     Dates: start: 20151120
  73. LYRICA [Concomitant]
     Active Substance: PREGABALIN
     Dosage: 300 MG, UNK
     Dates: start: 20130801, end: 20130829
  74. DICLOFENAC [Concomitant]
     Active Substance: DICLOFENAC
     Dosage: UNK UNK, 3X/DAY
     Dates: start: 201301
  75. FLUCLOXACILLIN [Concomitant]
     Active Substance: FLUCLOXACILLIN
     Dosage: UNK
     Dates: start: 20150403, end: 20150413
  76. FLUCLOXACILLIN [Concomitant]
     Active Substance: FLUCLOXACILLIN
     Dosage: 2 G, UNK
     Dates: start: 20160828, end: 20160829
  77. OSELTAMIVIR [Concomitant]
     Active Substance: OSELTAMIVIR
     Dosage: UNK
     Route: 065
     Dates: start: 20140312, end: 20140318

REACTIONS (2)
  - Device related sepsis [Recovered/Resolved]
  - Sepsis [Recovered/Resolved]

NARRATIVE: CASE EVENT DATE: 20151105
